FAERS Safety Report 21968894 (Version 1)
Quarter: 2023Q1

REPORT INFORMATION
  Report Type: Spontaneous
  Country: US (occurrence: US)
  Receive Date: 20230208
  Receipt Date: 20230208
  Transmission Date: 20230417
  Serious: Yes (Death, Other)
  Sender: FDA-Public Use
  Company Number: US-DSJP-DSU-2023-104914

PATIENT
  Sex: Female

DRUGS (1)
  1. ENHERTU [Suspect]
     Active Substance: FAM-TRASTUZUMAB DERUXTECAN-NXKI
     Indication: Gastric cancer
     Dosage: 5.4 MG/KG
     Route: 042

REACTIONS (3)
  - COVID-19 [Fatal]
  - Bedridden [Unknown]
  - Overdose [Unknown]
